FAERS Safety Report 14683875 (Version 7)
Quarter: 2019Q4

REPORT INFORMATION
  Report Type: Spontaneous
  Country: DE (occurrence: DE)
  Receive Date: 20180327
  Receipt Date: 20191227
  Transmission Date: 20200122
  Serious: Yes (Other)
  Sender: FDA-Public Use
  Company Number: DE-009507513-1712DEU010267

PATIENT
  Age: 31 Year
  Sex: Male
  Weight: 67 kg

DRUGS (1)
  1. PROSCAR [Suspect]
     Active Substance: FINASTERIDE
     Indication: ALOPECIA
     Dosage: ON FOUR DAYS 1.25 MG, NO TABLET ON DAY 5; AVERAGE DOSE WAS 1 MG/DAY
     Route: 048
     Dates: start: 2004, end: 2014

REACTIONS (82)
  - Tinnitus [Unknown]
  - Dry skin [Not Recovered/Not Resolved]
  - Lipoatrophy [Not Recovered/Not Resolved]
  - Feeling cold [Not Recovered/Not Resolved]
  - Escherichia test positive [Unknown]
  - Norepinephrine decreased [Unknown]
  - Myopia [Recovered/Resolved]
  - Mitochondrial cytopathy [Unknown]
  - Sjogren^s syndrome [Unknown]
  - Gynaecomastia [Unknown]
  - Sensory loss [Not Recovered/Not Resolved]
  - Peyronie^s disease [Not Recovered/Not Resolved]
  - Prostatic disorder [Not Recovered/Not Resolved]
  - Listless [Not Recovered/Not Resolved]
  - Dry eye [Not Recovered/Not Resolved]
  - Body temperature decreased [Not Recovered/Not Resolved]
  - Hyposmia [Not Recovered/Not Resolved]
  - Serum serotonin decreased [Unknown]
  - Fatigue [Not Recovered/Not Resolved]
  - Apathy [Not Recovered/Not Resolved]
  - Sleep disorder [Not Recovered/Not Resolved]
  - Muscular weakness [Unknown]
  - Muscle twitching [Not Recovered/Not Resolved]
  - Hyperhidrosis [Unknown]
  - Loss of libido [Not Recovered/Not Resolved]
  - Penile pain [Not Recovered/Not Resolved]
  - Male genital atrophy [Not Recovered/Not Resolved]
  - Arterial insufficiency [Unknown]
  - Product use in unapproved indication [Unknown]
  - Anhedonia [Not Recovered/Not Resolved]
  - Mood swings [Unknown]
  - Feeling abnormal [Unknown]
  - Visual impairment [Unknown]
  - Myalgia [Unknown]
  - Dyspepsia [Not Recovered/Not Resolved]
  - Urinary incontinence [Not Recovered/Not Resolved]
  - Depression [Not Recovered/Not Resolved]
  - Hair colour changes [Not Recovered/Not Resolved]
  - Weight increased [Not Recovered/Not Resolved]
  - Off label use [Unknown]
  - Erectile dysfunction [Not Recovered/Not Resolved]
  - Reading disorder [Not Recovered/Not Resolved]
  - Thinking abnormal [Not Recovered/Not Resolved]
  - Hair texture abnormal [Not Recovered/Not Resolved]
  - Hypotrichosis [Unknown]
  - Pollakiuria [Not Recovered/Not Resolved]
  - Disturbance in sexual arousal [Not Recovered/Not Resolved]
  - Infertility male [Not Recovered/Not Resolved]
  - Peripheral coldness [Not Recovered/Not Resolved]
  - Muscle disorder [Not Recovered/Not Resolved]
  - Body fat disorder [Not Recovered/Not Resolved]
  - Blepharitis [Unknown]
  - Post 5-alpha-reductase inhibitor syndrome [Unknown]
  - Panic attack [Not Recovered/Not Resolved]
  - Memory impairment [Not Recovered/Not Resolved]
  - Arthralgia [Unknown]
  - Muscle atrophy [Unknown]
  - Eczema [Unknown]
  - Inflammation [Unknown]
  - Gastrointestinal inflammation [Unknown]
  - Genital tract inflammation [Not Recovered/Not Resolved]
  - Penile curvature [Not Recovered/Not Resolved]
  - Lid sulcus deepened [Not Recovered/Not Resolved]
  - Wrong technique in product usage process [Unknown]
  - Adrenal disorder [Unknown]
  - Orgasmic sensation decreased [Not Recovered/Not Resolved]
  - Semen volume decreased [Not Recovered/Not Resolved]
  - Hypohidrosis [Unknown]
  - Meibomian gland dysfunction [Not Recovered/Not Resolved]
  - Facial asymmetry [Not Recovered/Not Resolved]
  - Hypogeusia [Not Recovered/Not Resolved]
  - Astigmatism [Recovered/Resolved]
  - Suicidal ideation [Not Recovered/Not Resolved]
  - Anxiety [Not Recovered/Not Resolved]
  - Illogical thinking [Not Recovered/Not Resolved]
  - Disorientation [Unknown]
  - Palpitations [Unknown]
  - Penis disorder [Not Recovered/Not Resolved]
  - Disturbance in attention [Not Recovered/Not Resolved]
  - Stress [Not Recovered/Not Resolved]
  - Skin atrophy [Not Recovered/Not Resolved]
  - Teratospermia [Unknown]

NARRATIVE: CASE EVENT DATE: 2004
